FAERS Safety Report 7910041-5 (Version None)
Quarter: 2011Q4

REPORT INFORMATION
  Report Type: 
  Country: None (occurrence: None)
  Receive Date: 20111111
  Receipt Date: 20111107
  Transmission Date: 20120403
  Serious: Yes (Other)
  Sender: FDA-Public Use
  Company Number: US-ABBOTT-11P-163-0872266-00

PATIENT
  Sex: Female
  Weight: 86.26 kg

DRUGS (5)
  1. HUMIRA [Suspect]
     Indication: RHEUMATOID ARTHRITIS
     Dates: start: 20071128, end: 20110827
  2. METHOTREXATE [Concomitant]
     Indication: RHEUMATOID ARTHRITIS
  3. PLAQUENIL [Concomitant]
     Indication: RHEUMATOID ARTHRITIS
  4. HUMIRA [Suspect]
     Dates: start: 20111103
  5. OXYCODONE HCL [Suspect]
     Indication: PAIN IN EXTREMITY
     Dates: start: 20110901, end: 20110901

REACTIONS (8)
  - VOMITING [None]
  - DYSSTASIA [None]
  - FOOT DEFORMITY [None]
  - RHEUMATOID ARTHRITIS [None]
  - PAIN IN EXTREMITY [None]
  - NEURALGIA [None]
  - PROCEDURAL PAIN [None]
  - OEDEMA PERIPHERAL [None]
